FAERS Safety Report 24254936 (Version 1)
Quarter: 2024Q3

REPORT INFORMATION
  Report Type: Spontaneous
  Country: US (occurrence: US)
  Receive Date: 20240827
  Receipt Date: 20240827
  Transmission Date: 20241017
  Serious: No
  Sender: BIOMARIN
  Company Number: US-BIOMARINAP-US-2024-160055

PATIENT

DRUGS (2)
  1. VOXZOGO [Suspect]
     Active Substance: VOSORITIDE
     Indication: Osteochondrodysplasia
     Dosage: 1.2 MILLIGRAM
     Route: 058
     Dates: start: 20231120
  2. VOXZOGO [Suspect]
     Active Substance: VOSORITIDE
     Dosage: 0.56 MILLIGRAM, QD
     Route: 058
     Dates: start: 20231120

REACTIONS (3)
  - Abdominal pain upper [Unknown]
  - Pain [Unknown]
  - Muscle spasms [Unknown]

NARRATIVE: CASE EVENT DATE: 20240820
